FAERS Safety Report 5215200-0 (Version None)
Quarter: 2007Q1

REPORT INFORMATION
  Report Type: 
  Country: None (occurrence: None)
  Receive Date: 20061108
  Receipt Date: 20060828
  Transmission Date: 20070707
  Serious: Yes (Hospitalization, Other)
  Sender: FDA-Public Use
  Company Number: US200608005985

PATIENT
  Age: 22 Year
  Sex: Male

DRUGS (8)
  1. PROZAC [Suspect]
     Indication: DEPRESSION
     Dosage: ORAL
     Route: 048
     Dates: start: 19990101, end: 19990101
  2. LAMICTAL [Concomitant]
  3. ELAVIL (AMITRIPTYLINE HDYROCHLORIDE) [Concomitant]
  4. XANAX [Concomitant]
  5. VALIUM [Concomitant]
  6. DILAUDID [Concomitant]
  7. BENEFIBER  (GUAR GUM) [Concomitant]
  8. MULTIVITAMIN [Concomitant]

REACTIONS (1)
  - MANIA [None]
